FAERS Safety Report 22315843 (Version 1)
Quarter: 2023Q2

REPORT INFORMATION
  Report Type: Other
  Country: None (occurrence: DE)
  Receive Date: 20230512
  Receipt Date: 20230512
  Transmission Date: 20230722
  Serious: Yes (Death, Hospitalization, Other)
  Sender: FDA-Public Use
  Company Number: DE-VistaPharm, Inc.-2141421

PATIENT
  Age: 52 Year
  Sex: Male

DRUGS (5)
  1. MYCOPHENOLATE MOFETIL [Suspect]
     Active Substance: MYCOPHENOLATE MOFETIL
     Indication: Immunosuppression
  2. DEVICE [Suspect]
     Active Substance: DEVICE
  3. CYCLOSPORINE [Suspect]
     Active Substance: CYCLOSPORINE
  4. TACROLIMUS [Suspect]
     Active Substance: TACROLIMUS
  5. PREDNISONE [Suspect]
     Active Substance: PREDNISONE

REACTIONS (2)
  - Complement factor increased [Unknown]
  - Amyloidosis senile [Unknown]
